FAERS Safety Report 9611054 (Version 2)
Quarter: 2013Q4

REPORT INFORMATION
  Report Type: Spontaneous
  Country: GB (occurrence: GB)
  Receive Date: 20131009
  Receipt Date: 20131009
  Transmission Date: 20140711
  Serious: Yes (Other)
  Sender: FDA-Public Use
  Company Number: GB-ACTAVIS-2012-23237

PATIENT
  Age: 47 Year
  Sex: Female
  Weight: 93 kg

DRUGS (1)
  1. CETIRIZINE (UNKNOWN) [Suspect]
     Indication: ASTHMA
     Dosage: 1 DF, DAILY
     Route: 048
     Dates: start: 2011, end: 20121202

REACTIONS (5)
  - Withdrawal syndrome [Not Recovered/Not Resolved]
  - Pruritus [Not Recovered/Not Resolved]
  - Weight increased [Recovering/Resolving]
  - Off label use [Unknown]
  - Drug ineffective [Recovered/Resolved]
